FAERS Safety Report 4972888-7 (Version None)
Quarter: 2006Q2

REPORT INFORMATION
  Report Type: 
  Country: None (occurrence: None)
  Receive Date: 20060410
  Receipt Date: 20060320
  Transmission Date: 20061013
  Serious: Yes (Hospitalization, Other)
  Sender: FDA-Public Use
  Company Number: US200603005428

PATIENT
  Age: 23 Year
  Sex: Male
  Weight: 92.5 kg

DRUGS (15)
  1. ZYPREXA [Suspect]
     Dosage: SEE IMAGE
     Dates: start: 20050901, end: 20051204
  2. ZYPREXA [Suspect]
     Dosage: SEE IMAGE
     Dates: start: 19970101
  3. ZYPREXA [Suspect]
     Dosage: SEE IMAGE
     Dates: start: 20000101
  4. ZYPREXA [Suspect]
     Dosage: SEE IMAGE
     Dates: start: 20010307
  5. ZYPREXA [Suspect]
     Dosage: SEE IMAGE
     Dates: start: 20040324
  6. ZYPREXA [Suspect]
     Dosage: SEE IMAGE
     Dates: start: 20040409
  7. ZYPREXA [Suspect]
     Dosage: SEE IMAGE
     Dates: start: 20050305
  8. TRAZODONE HCL [Concomitant]
  9. SEROQUEL [Concomitant]
  10. ABILIFY [Concomitant]
  11. PAXIL [Concomitant]
  12. STRATTERA /USA/ (TOMOXETINE HYDROCHLORIDE) [Concomitant]
  13. INDERAL [Concomitant]
  14. FLUOXETINE /N/A/ (FLUOXETINE) [Concomitant]
  15. RISPERDAL /SWE/ (RISPERIDONE) [Concomitant]

REACTIONS (7)
  - BLOOD ALKALINE PHOSPHATASE INCREASED [None]
  - BLOOD GLUCOSE INCREASED [None]
  - HAEMOPTYSIS [None]
  - INCREASED APPETITE [None]
  - PANCREATITIS [None]
  - PRESCRIBED OVERDOSE [None]
  - WEIGHT INCREASED [None]
